FAERS Safety Report 10386548 (Version 1)
Quarter: 2014Q3

REPORT INFORMATION
  Report Type: Spontaneous
  Country: US (occurrence: None)
  Receive Date: 20140814
  Receipt Date: 20140814
  Transmission Date: 20150326
  Serious: Yes (Hospitalization)
  Sender: FDA-Public Use
  Company Number: None

PATIENT
  Age: 65 Year
  Sex: Male
  Weight: 176 kg

DRUGS (12)
  1. WARFARIN [Concomitant]
     Active Substance: WARFARIN
  2. METOPROLOL SUCCINATE. [Concomitant]
     Active Substance: METOPROLOL SUCCINATE
  3. ZINC SULFATE [Concomitant]
     Active Substance: ZINC SULFATE\ZINC SULFATE ANHYDROUS
  4. SILVER SULFADIAZINE 1% CREAM [Concomitant]
  5. CEFTAROLINE [Suspect]
     Active Substance: CEFTAROLINE
     Indication: CELLULITIS
     Route: 042
     Dates: start: 20140718, end: 20140729
  6. CADEXOMER IODINE GEL [Concomitant]
  7. ACETAMINOPHEN-CODEINE [Concomitant]
     Active Substance: ACETAMINOPHEN\CODEINE PHOSPHATE
  8. DILTIAZEM [Concomitant]
     Active Substance: DILTIAZEM
  9. ASCORBIC ACID. [Concomitant]
     Active Substance: ASCORBIC ACID
  10. MULTIVITAMIN [Concomitant]
     Active Substance: VITAMINS
  11. TOLTERODINE TARTRATE. [Concomitant]
     Active Substance: TOLTERODINE TARTRATE
  12. IPRATROPIUM INHALER [Concomitant]

REACTIONS (1)
  - International normalised ratio increased [None]

NARRATIVE: CASE EVENT DATE: 20140730
